FAERS Safety Report 8281754-3 (Version None)
Quarter: 2012Q2

REPORT INFORMATION
  Report Type: 
  Country: None (occurrence: None)
  Receive Date: 20120413
  Receipt Date: 20120404
  Transmission Date: 20120825
  Serious: Yes (Life-Threatening, Other)
  Sender: FDA-Public Use
  Company Number: FR-BAYER-2012-032785

PATIENT
  Age: 46 Year
  Sex: Female

DRUGS (1)
  1. YAZ [Suspect]
     Route: 048

REACTIONS (2)
  - INFARCTION [None]
  - PULMONARY EMBOLISM [None]
